FAERS Safety Report 23393144 (Version 1)
Quarter: 2024Q1

REPORT INFORMATION
  Report Type: Spontaneous
  Country: CA (occurrence: CA)
  Receive Date: 20240111
  Receipt Date: 20240111
  Transmission Date: 20240410
  Serious: Yes (Life-Threatening, Hospitalization, Other)
  Sender: FDA-Public Use
  Company Number: CA-BRISTOL-MYERS SQUIBB COMPANY-2024-004864

PATIENT
  Age: 50 Year
  Sex: Female

DRUGS (8)
  1. PACLITAXEL [Interacting]
     Active Substance: PACLITAXEL
     Indication: Paraneoplastic dermatomyositis
  2. PACLITAXEL [Interacting]
     Active Substance: PACLITAXEL
     Route: 042
  3. PREDNISONE [Interacting]
     Active Substance: PREDNISONE
     Indication: Paraneoplastic dermatomyositis
     Route: 048
  4. CARBOPLATIN [Interacting]
     Active Substance: CARBOPLATIN
     Indication: Paraneoplastic dermatomyositis
     Route: 042
  5. METHYLPREDNISOLONE [Interacting]
     Active Substance: METHYLPREDNISOLONE
     Indication: Paraneoplastic dermatomyositis
  6. PHENYTOIN [Interacting]
     Active Substance: PHENYTOIN
     Indication: Partial seizures
  7. CARBAMAZEPINE [Concomitant]
     Active Substance: CARBAMAZEPINE
     Indication: Partial seizures
  8. CEFAZOLIN [Concomitant]
     Active Substance: CEFAZOLIN
     Indication: Peritonitis bacterial

REACTIONS (5)
  - Drug ineffective [Unknown]
  - Drug interaction [Unknown]
  - Off label use [Unknown]
  - Adverse event [Unknown]
  - Hospitalisation [Unknown]
